FAERS Safety Report 8206831-4 (Version None)
Quarter: 2012Q1

REPORT INFORMATION
  Report Type: 
  Country: None (occurrence: None)
  Receive Date: 20120314
  Receipt Date: 20120308
  Transmission Date: 20120608
  Serious: Yes (Hospitalization)
  Sender: FDA-Public Use
  Company Number: US-AMGEN-USASP2012015496

PATIENT
  Age: 44 Year
  Sex: Female

DRUGS (2)
  1. NEUPOGEN [Suspect]
     Indication: CHEMOTHERAPY
     Dosage: 341.5 MUG, UNK
     Dates: start: 20111009, end: 20111016
  2. MELPHALAN HYDROCHLORIDE [Suspect]
     Indication: BONE MARROW CONDITIONING REGIMEN
     Dosage: 169 MG, QD
     Route: 042
     Dates: start: 20111001, end: 20111002

REACTIONS (10)
  - PNEUMONIA [None]
  - MUCOSAL INFLAMMATION [None]
  - DIARRHOEA [None]
  - FLUID OVERLOAD [None]
  - PYREXIA [None]
  - NAUSEA [None]
  - HYPERNATRAEMIA [None]
  - NEUTROPENIA [None]
  - INTERNATIONAL NORMALISED RATIO INCREASED [None]
  - VOMITING [None]
